FAERS Safety Report 7440049-8 (Version None)
Quarter: 2011Q2

REPORT INFORMATION
  Report Type: 
  Country: None (occurrence: None)
  Receive Date: 20110427
  Receipt Date: 20110331
  Transmission Date: 20111010
  Serious: Yes (Other)
  Sender: FDA-Public Use
  Company Number: US-BAYER-201029554NA

PATIENT
  Age: 48 Year
  Sex: Female
  Weight: 63 kg

DRUGS (1)
  1. YASMIN [Suspect]
     Indication: HOT FLUSH

REACTIONS (1)
  - PULMONARY EMBOLISM [None]
